FAERS Safety Report 18739489 (Version 1)
Quarter: 2021Q1

REPORT INFORMATION
  Report Type: Spontaneous
  Country: US (occurrence: US)
  Receive Date: 20210113
  Receipt Date: 20210113
  Transmission Date: 20210419
  Serious: No
  Sender: FDA-Public Use
  Company Number: None

PATIENT
  Age: 71 Year
  Sex: Female
  Weight: 61.8 kg

DRUGS (13)
  1. CHOLECALCIFEROL 1000 UNIT PO DAILY [Concomitant]
  2. MULTIVITAMIN WITH MINERALS DAILY [Concomitant]
  3. SIMVASTATIN 20 MG PO [Concomitant]
  4. FUROSEMIDE 40 MG PO DAILY [Concomitant]
  5. CALCIUM CITRATE 1200 MG PO DAILY [Concomitant]
  6. LORAZEPAM 0.5 MG PO PRN TID ANXIETY [Concomitant]
  7. KCL 20 MEQ PO BID [Concomitant]
  8. ASPIRIN 81 MG PO DAILY [Concomitant]
  9. LEVOTHYROXINE 75 MCG PO DAILY [Concomitant]
  10. MECLIZINE 25 MG PO [Concomitant]
     Dates: start: 20210104
  11. MELOXICAM 15 MG PO [Concomitant]
     Dates: start: 20210104
  12. BAMLANIVIMAB. [Suspect]
     Active Substance: BAMLANIVIMAB
     Indication: COVID-19 PROPHYLAXIS
     Dosage: ?          OTHER FREQUENCY:ONCE;?
     Route: 041
     Dates: start: 20210104, end: 20210104
  13. TRAZODONE 200 MG PO DAILY [Concomitant]

REACTIONS (4)
  - Rash [None]
  - Fatigue [None]
  - Malaise [None]
  - Rash macular [None]

NARRATIVE: CASE EVENT DATE: 20210104
